FAERS Safety Report 20714539 (Version 1)
Quarter: 2022Q2

REPORT INFORMATION
  Report Type: Spontaneous
  Country: CN (occurrence: None)
  Receive Date: 20220415
  Receipt Date: 20220415
  Transmission Date: 20220721
  Serious: Yes (Other)
  Sender: FDA-Public Use
  Company Number: CN-ROCHE-3069976

PATIENT
  Sex: Female

DRUGS (11)
  1. TRASTUZUMAB [Suspect]
     Active Substance: TRASTUZUMAB
     Indication: Cancer surgery
     Dosage: TRASTUZUMAB TARGETED THERAPY
     Route: 065
  2. TRASTUZUMAB [Suspect]
     Active Substance: TRASTUZUMAB
     Dosage: TRASTUZUMAB + CAPECITABINE
     Route: 065
     Dates: start: 202011
  3. TRASTUZUMAB [Suspect]
     Active Substance: TRASTUZUMAB
     Dosage: TRASTUZUMAB IN COMBINATION WITH CHEMOTHERAPY
     Route: 065
  4. CAPECITABINE [Suspect]
     Active Substance: CAPECITABINE
     Indication: Cancer surgery
     Dosage: TRASTUZUMAB + CAPECITABINE
     Route: 048
     Dates: start: 202011
  5. CAPECITABINE [Suspect]
     Active Substance: CAPECITABINE
     Dosage: PYRROTINIB + CAPECITABINE
     Route: 065
  6. DOCETAXEL [Concomitant]
     Active Substance: DOCETAXEL
  7. CYCLOPHOSPHAMIDE [Concomitant]
     Active Substance: CYCLOPHOSPHAMIDE
  8. EPIRUBICIN [Concomitant]
     Active Substance: EPIRUBICIN
  9. DOCETAXEL [Concomitant]
     Active Substance: DOCETAXEL
  10. CISPLATIN [Concomitant]
     Active Substance: CISPLATIN
  11. PACLITAXEL [Concomitant]
     Active Substance: PACLITAXEL

REACTIONS (2)
  - Intestinal obstruction [Unknown]
  - Myelosuppression [Unknown]

NARRATIVE: CASE EVENT DATE: 20210101
